FAERS Safety Report 6800551-6 (Version None)
Quarter: 2010Q2

REPORT INFORMATION
  Report Type: 
  Country: None (occurrence: None)
  Receive Date: 20100629
  Receipt Date: 20100621
  Transmission Date: 20101027
  Serious: No
  Sender: FDA-Public Use
  Company Number: 2010BI000926

PATIENT
  Age: 51 Year
  Sex: Female

DRUGS (2)
  1. TYSABRI [Suspect]
     Indication: MULTIPLE SCLEROSIS
     Route: 042
     Dates: start: 20100104
  2. AVONEX [Concomitant]
     Indication: MULTIPLE SCLEROSIS
     Route: 030

REACTIONS (9)
  - ABDOMINAL DISCOMFORT [None]
  - BACK PAIN [None]
  - BALANCE DISORDER [None]
  - CONTUSION [None]
  - DEPRESSION [None]
  - FALL [None]
  - FATIGUE [None]
  - NASOPHARYNGITIS [None]
  - SEASONAL ALLERGY [None]
